FAERS Safety Report 8247282-6 (Version None)
Quarter: 2012Q1

REPORT INFORMATION
  Report Type: 
  Country: None (occurrence: None)
  Receive Date: 20120330
  Receipt Date: 20120322
  Transmission Date: 20120608
  Serious: Yes (Hospitalization)
  Sender: FDA-Public Use
  Company Number: US-PFIZER INC-2010126975

PATIENT
  Sex: Female
  Weight: 57.143 kg

DRUGS (7)
  1. DELSYM [Concomitant]
     Indication: COUGH
     Dosage: 30 MG, AS NEEDED
     Route: 048
     Dates: start: 20090101
  2. AXITINIB [Suspect]
     Indication: METASTATIC RENAL CELL CARCINOMA
     Dosage: 5 MG, 2X/DAY
     Route: 048
     Dates: start: 20100820
  3. ATENOLOL [Concomitant]
     Indication: HYPERTENSION
     Dosage: 75 MG, 1X/DAY
     Route: 048
     Dates: start: 20100913
  4. PSYLLIUM HYDROPHILIC MUCILLOID [Concomitant]
     Indication: CONSTIPATION
     Dosage: UNK
     Route: 048
     Dates: start: 20080101
  5. ESTRADIOL [Concomitant]
     Indication: HORMONE REPLACEMENT THERAPY
     Dosage: UNK
     Route: 048
     Dates: start: 20090101
  6. LOVASTATIN [Concomitant]
     Indication: HYPERCHOLESTEROLAEMIA
     Dosage: 20 MG, 1X/DAY
     Route: 048
     Dates: start: 20050101
  7. NORVASC [Concomitant]
     Indication: HYPERTENSION
     Dosage: 5 MG, 1X/DAY
     Route: 048
     Dates: start: 20100913

REACTIONS (3)
  - PULMONARY OEDEMA [None]
  - PULMONARY HYPERTENSION [None]
  - DIASTOLIC DYSFUNCTION [None]
